FAERS Safety Report 24599056 (Version 1)
Quarter: 2024Q4

REPORT INFORMATION
  Report Type: Spontaneous
  Country: US (occurrence: US)
  Receive Date: 20241110
  Receipt Date: 20241110
  Transmission Date: 20250114
  Serious: Yes (Hospitalization)
  Sender: SANOFI AVENTIS
  Company Number: US-SA-2024SA305086

PATIENT
  Age: 61 Year
  Sex: Female
  Weight: 93.18 kg

DRUGS (7)
  1. DUPIXENT [Suspect]
     Active Substance: DUPILUMAB
     Indication: Dermatitis atopic
     Dosage: 300 MG, QOW
     Route: 058
  2. CHOLESTYRAMINE [Concomitant]
     Active Substance: CHOLESTYRAMINE
  3. ESTRADIOL [Concomitant]
     Active Substance: ESTRADIOL
  4. DULOXETINE [Concomitant]
     Active Substance: DULOXETINE
  5. SCOPOLAMINE [Concomitant]
     Active Substance: SCOPOLAMINE
  6. CARVEDILOL [Concomitant]
     Active Substance: CARVEDILOL
  7. LEVOTHYROXINE SODIUM [Concomitant]
     Active Substance: LEVOTHYROXINE SODIUM

REACTIONS (1)
  - Spinal fusion surgery [Unknown]
